FAERS Safety Report 10917531 (Version 2)
Quarter: 2016Q1

REPORT INFORMATION
  Report Type: Report from Study
  Country: US (occurrence: US)
  Receive Date: 20150316
  Receipt Date: 20160115
  Transmission Date: 20160525
  Serious: Yes (Disabling, Other)
  Sender: FDA-Public Use
  Company Number: US-SA-2014SA140398

PATIENT
  Age: 54 Year
  Sex: Male
  Weight: 108.8 kg

DRUGS (2)
  1. AUBAGIO [Suspect]
     Active Substance: TERIFLUNOMIDE
     Indication: MULTIPLE SCLEROSIS
     Route: 048
     Dates: start: 20130702
  2. SOLU-MEDROL [Concomitant]
     Active Substance: METHYLPREDNISOLONE SODIUM SUCCINATE
     Route: 042

REACTIONS (13)
  - Knee arthroplasty [Unknown]
  - Muscle twitching [Unknown]
  - Condition aggravated [Not Recovered/Not Resolved]
  - Fine motor delay [Unknown]
  - Activities of daily living impaired [Not Recovered/Not Resolved]
  - Gait disturbance [Unknown]
  - Unevaluable event [Unknown]
  - Balance disorder [Not Recovered/Not Resolved]
  - Dysgraphia [Unknown]
  - Weight loss poor [Not Recovered/Not Resolved]
  - Muscular weakness [Not Recovered/Not Resolved]
  - Grip strength decreased [Unknown]
  - Fine motor skill dysfunction [Unknown]
